FAERS Safety Report 4293846-4 (Version None)
Quarter: 2004Q1

REPORT INFORMATION
  Report Type: 
  Country: None (occurrence: None)
  Receive Date: 20040210
  Receipt Date: 20040202
  Transmission Date: 20041129
  Serious: Yes (Hospitalization)
  Sender: FDA-Public Use
  Company Number: 2004197177FR

PATIENT
  Age: 37 Year
  Sex: Female

DRUGS (6)
  1. VANTIN [Suspect]
     Dosage: 100 MG, ORAL
     Route: 048
     Dates: start: 20030812, end: 20030813
  2. TOPLEXIL (OXOMEMAZINE) [Suspect]
     Dosage: ORAL
     Route: 048
     Dates: start: 20030812, end: 20030813
  3. ACETAMINOPHEN [Suspect]
     Dosage: ORAL
     Route: 048
     Dates: start: 20030812, end: 20030816
  4. ACETYLCYSTEINE [Suspect]
     Dosage: ORAL
     Route: 048
     Dates: start: 20030812, end: 20030816
  5. ADVIL [Suspect]
     Dosage: ORAL
     Route: 048
     Dates: start: 20030811, end: 20030811
  6. CARBOCISTEINE [Suspect]
     Dosage: ORAL
     Route: 048
     Dates: start: 20030811, end: 20030811

REACTIONS (3)
  - ABNORMAL BEHAVIOUR [None]
  - DERMATITIS EXFOLIATIVE [None]
  - RASH MACULO-PAPULAR [None]
